FAERS Safety Report 18928181 (Version 5)
Quarter: 2021Q3

REPORT INFORMATION
  Report Type: Report from Study
  Country: FI (occurrence: FI)
  Receive Date: 20210223
  Receipt Date: 20210825
  Transmission Date: 20211014
  Serious: Yes (Hospitalization)
  Sender: FDA-Public Use
  Company Number: FI-ROCHE-2772372

PATIENT
  Age: 50 Year
  Sex: Female
  Weight: 65.6 kg

DRUGS (8)
  1. ROSUVASTATIN. [Concomitant]
     Active Substance: ROSUVASTATIN
     Dates: start: 2017, end: 20210224
  2. PRIMPERAN [Concomitant]
     Active Substance: METOCLOPRAMIDE HYDROCHLORIDE
     Dates: start: 20210204
  3. GRANISETRON [Concomitant]
     Active Substance: GRANISETRON
     Dates: start: 20210205
  4. SOMAC [Concomitant]
     Active Substance: PANTOPRAZOLE SODIUM
     Dates: start: 20210206
  5. ATEZOLIZUMAB. [Suspect]
     Active Substance: ATEZOLIZUMAB
     Indication: TRIPLE NEGATIVE BREAST CANCER
     Dosage: DATE OF THE MOST RECENT DOSE OF ATEZOLIZUMAB  PRIOR TO AE AND SAE ONSET: 03/FEB/2021?ATEZO TS 1200MG
     Route: 041
     Dates: start: 20210203
  6. TEMESTA [Concomitant]
     Dates: start: 20210206
  7. CAPECITABINE. [Suspect]
     Active Substance: CAPECITABINE
     Indication: TRIPLE NEGATIVE BREAST CANCER
     Dosage: DATE OF THE MOST RECENT DOSE OF CAPECITABINE (1300 MG) PRIOR TO AE AND SAE ONSET: 13/FEB/2021
     Route: 048
     Dates: start: 20210203
  8. VENLAFAXIN [Concomitant]
     Active Substance: VENLAFAXINE HYDROCHLORIDE
     Dates: start: 202008

REACTIONS (1)
  - Pericardial effusion [Recovered/Resolved]

NARRATIVE: CASE EVENT DATE: 20210215
